FAERS Safety Report 25915832 (Version 1)
Quarter: 2025Q4

REPORT INFORMATION
  Report Type: Spontaneous
  Country: CN (occurrence: CN)
  Receive Date: 20251013
  Receipt Date: 20251013
  Transmission Date: 20260118
  Serious: Yes (Other)
  Sender: BEIGENE
  Company Number: CN-BEIGENE-BGN-2025-017161

PATIENT
  Age: 33 Year

DRUGS (10)
  1. TISLELIZUMAB [Suspect]
     Active Substance: TISLELIZUMAB
     Indication: Nasopharyngeal cancer
     Dosage: 200 MILLIGRAM
  2. TISLELIZUMAB [Suspect]
     Active Substance: TISLELIZUMAB
     Dosage: 200 MILLIGRAM
     Route: 041
  3. TISLELIZUMAB [Suspect]
     Active Substance: TISLELIZUMAB
     Dosage: 200 MILLIGRAM
     Route: 041
  4. TISLELIZUMAB [Suspect]
     Active Substance: TISLELIZUMAB
     Dosage: 200 MILLIGRAM
  5. PACLITAXEL [Suspect]
     Active Substance: PACLITAXEL
     Indication: Nasopharyngeal cancer
     Dosage: 480 MILLIGRAM
     Route: 041
  6. PACLITAXEL [Suspect]
     Active Substance: PACLITAXEL
     Dosage: 480 MILLIGRAM
  7. CISPLATIN [Suspect]
     Active Substance: CISPLATIN
     Indication: Nasopharyngeal cancer
     Dosage: 80 MILLIGRAM
  8. CISPLATIN [Suspect]
     Active Substance: CISPLATIN
     Dosage: 80 MILLIGRAM
     Route: 041
  9. CISPLATIN [Suspect]
     Active Substance: CISPLATIN
     Dosage: 70 MILLIGRAM
  10. CISPLATIN [Suspect]
     Active Substance: CISPLATIN
     Dosage: 70 MILLIGRAM
     Route: 041

REACTIONS (2)
  - Myelosuppression [Recovering/Resolving]
  - Hepatic enzyme increased [Recovering/Resolving]
